FAERS Safety Report 15743712 (Version 1)
Quarter: 2018Q4

REPORT INFORMATION
  Report Type: Spontaneous
  Country: ZA (occurrence: ZA)
  Receive Date: 20181220
  Receipt Date: 20181220
  Transmission Date: 20190205
  Serious: Yes (Hospitalization, Other)
  Sender: FDA-Public Use
  Company Number: ZA-009507513-1812ZAF006956

PATIENT
  Sex: Male

DRUGS (5)
  1. EZETROL 10MG [Suspect]
     Active Substance: EZETIMIBE
     Dosage: 10 MILLIGRAM
     Route: 048
  2. ASPAVOR [Suspect]
     Active Substance: ATORVASTATIN
     Indication: BLOOD CHOLESTEROL
     Dosage: 40 MILLIGRAM
     Dates: start: 2012, end: 20180929
  3. LORIEN [Suspect]
     Active Substance: FLUOXETINE HYDROCHLORIDE
     Dosage: 20 MILLIGRAM
  4. BRAZEPAM [Suspect]
     Active Substance: BROMAZEPAM
     Dosage: 6 MILLIGRAM
  5. ECOTRIN [Suspect]
     Active Substance: ASPIRIN
     Dosage: 81 MILLIGRAM

REACTIONS (3)
  - Myocardial infarction [Unknown]
  - Road traffic accident [Unknown]
  - Multiple fractures [Unknown]

NARRATIVE: CASE EVENT DATE: 2012
